FAERS Safety Report 8374441-4 (Version None)
Quarter: 2012Q2

REPORT INFORMATION
  Report Type: 
  Country: None (occurrence: None)
  Receive Date: 20120521
  Receipt Date: 20120507
  Transmission Date: 20120825
  Serious: Yes (Other)
  Sender: FDA-Public Use
  Company Number: CA-JNJFOC-20120510692

PATIENT
  Sex: Female
  Weight: 103.87 kg

DRUGS (33)
  1. PMS-METOPROLOL-L [Concomitant]
     Route: 048
  2. PLAVIX [Concomitant]
     Route: 048
  3. APO-ACETAMINOPHEN [Concomitant]
     Route: 048
  4. HUMALOG [Concomitant]
     Route: 050
  5. RAMIPRIL [Concomitant]
     Route: 048
  6. CITALOPRAM HYDROBROMIDE [Concomitant]
     Route: 048
  7. MESASAL [Concomitant]
     Dosage: 2 TABLETS THREE TIMES DAILY
     Route: 048
  8. REMICADE [Suspect]
     Indication: CROHN'S DISEASE
     Route: 042
     Dates: start: 20111206
  9. VITAMIN D [Concomitant]
     Route: 048
  10. METFORMIN HCL [Concomitant]
     Route: 048
     Dates: end: 20120301
  11. BACTROBAN [Concomitant]
     Indication: SKIN INFECTION
     Route: 061
  12. PMS-MIRTAZAPINE [Concomitant]
     Route: 048
  13. NPH INSULIN [Concomitant]
     Route: 050
  14. PENTAZOCINE LACTATE [Concomitant]
     Route: 048
  15. VICTOZA [Concomitant]
     Route: 050
  16. NOVO-ALPRAZOL [Concomitant]
     Route: 048
  17. NOVO-DOCUSATE [Concomitant]
     Route: 048
  18. ATROVENT HFA [Concomitant]
     Route: 055
  19. PMS-GABAPENTIN [Concomitant]
     Route: 048
  20. DETROL LA [Concomitant]
     Route: 048
  21. ASPIRIN [Concomitant]
     Route: 048
  22. APO-FUROSEMIDE [Concomitant]
     Route: 048
  23. ATORVASTATIN CALCIUM [Concomitant]
     Route: 048
  24. SYMBICORT [Concomitant]
     Route: 055
  25. ALL OTHER THERAPEUTICS [Concomitant]
     Route: 065
  26. APO-FOLIC [Concomitant]
     Route: 048
  27. ENTOCORT EC [Concomitant]
     Route: 048
     Dates: start: 20111212
  28. PREDNISOLONE ACETATE [Concomitant]
     Route: 047
  29. XYLOCAINE [Concomitant]
     Route: 061
  30. APO-KETOROLAC [Concomitant]
     Route: 047
  31. ALBUTEROL [Concomitant]
     Route: 055
  32. APO-METHOTREXATE [Concomitant]
     Route: 048
  33. OMEPRAZOLE [Concomitant]
     Route: 048

REACTIONS (1)
  - PARAESTHESIA [None]
